FAERS Safety Report 15152873 (Version 3)
Quarter: 2023Q2

REPORT INFORMATION
  Report Type: Other
  Country: US (occurrence: None)
  Receive Date: 20180717
  Receipt Date: 20230425
  Transmission Date: 20230722
  Serious: Yes (Other)
  Sender: FDA-Public Use
  Company Number: US-ROCHE-2153861

PATIENT
  Sex: Male

DRUGS (1)
  1. OCREVUS [Suspect]
     Active Substance: OCRELIZUMAB
     Indication: Relapsing multiple sclerosis
     Dosage: ATE OF SERVICE: 28/OCR/2021
     Route: 042
     Dates: start: 20180706

REACTIONS (10)
  - Nephrolithiasis [Recovered/Resolved]
  - Multiple sclerosis [Not Recovered/Not Resolved]
  - Lung disorder [Recovered/Resolved]
  - Influenza [Recovered/Resolved]
  - Sinus headache [Recovering/Resolving]
  - Feeling abnormal [Recovered/Resolved]
  - Arthralgia [Recovered/Resolved]
  - Nausea [Recovered/Resolved]
  - Nasopharyngitis [Unknown]
  - COVID-19 [Recovered/Resolved]

NARRATIVE: CASE EVENT DATE: 20180706
